FAERS Safety Report 13339846 (Version 2)
Quarter: 2017Q1

REPORT INFORMATION
  Report Type: Spontaneous
  Country: US (occurrence: US)
  Receive Date: 20170315
  Receipt Date: 20170331
  Transmission Date: 20170428
  Serious: Yes (Death, Hospitalization, Other)
  Sender: FDA-Public Use
  Company Number: US-009507513-1703USA005984

PATIENT
  Age: 70 Year
  Sex: Female
  Weight: 49.9 kg

DRUGS (9)
  1. LEVOTHYROXINE SODIUM. [Suspect]
     Active Substance: LEVOTHYROXINE SODIUM
     Indication: THYROID HORMONE REPLACEMENT THERAPY
     Dosage: 125 MCG ONCE A DAY
     Route: 048
     Dates: end: 20170216
  2. INTRON A [Suspect]
     Active Substance: INTERFERON ALFA-2B
     Indication: IMMUNISATION
     Dosage: 3 MILLION UNITS ONCE A DAY BY INJECTION
     Dates: start: 20170111, end: 20170130
  3. ZOFRAN [Concomitant]
     Active Substance: ONDANSETRON HYDROCHLORIDE
     Indication: NAUSEA
     Dosage: 8 MG EVERY 8 HOURS AS NEEDED
     Route: 048
     Dates: end: 20170216
  4. VFEND [Concomitant]
     Active Substance: VORICONAZOLE
     Dosage: 300 MG TWICE A DAY
     Dates: start: 201612, end: 20170216
  5. ACYCLOVIR. [Concomitant]
     Active Substance: ACYCLOVIR
     Indication: STEM CELL TRANSPLANT
     Dosage: 800 MG TWICE A DAY
     Route: 048
     Dates: end: 20170216
  6. PREVACID [Concomitant]
     Active Substance: LANSOPRAZOLE
     Indication: GASTROOESOPHAGEAL REFLUX DISEASE
     Dosage: 30 MG DR CAPSULE TWICE A DAY
     Route: 048
     Dates: end: 20170216
  7. FLONASE [Concomitant]
     Active Substance: FLUTICASONE PROPIONATE
     Indication: SINUSITIS
     Dosage: 2 SPRAY A DAY, INHALATION
     Dates: end: 20170216
  8. VFEND [Concomitant]
     Active Substance: VORICONAZOLE
     Indication: FUNGAL INFECTION
     Dosage: TAKING A 200MG DOSE OF VFEND AND A 50MG DOSE
     Route: 048
     Dates: start: 2014, end: 201612
  9. CASPOFUNGIN ACETATE. [Suspect]
     Active Substance: CASPOFUNGIN ACETATE
     Indication: FUNGAL INFECTION
     Dosage: 50 MG IV INFUSION, ONCE A DAY
     Route: 042
     Dates: end: 20170216

REACTIONS (4)
  - Septic shock [Fatal]
  - Graft versus host disease [Fatal]
  - Adverse event [Unknown]
  - Stem cell transplant [Unknown]

NARRATIVE: CASE EVENT DATE: 2017
